FAERS Safety Report 21169405 (Version 1)
Quarter: 2022Q3

REPORT INFORMATION
  Report Type: Spontaneous
  Country: PL (occurrence: PL)
  Receive Date: 20220804
  Receipt Date: 20220804
  Transmission Date: 20221027
  Serious: Yes (Other)
  Sender: FDA-Public Use
  Company Number: PL-ABBVIE-22K-129-4492271-00

PATIENT
  Age: 78 Year
  Sex: Female

DRUGS (9)
  1. VENETOCLAX [Suspect]
     Active Substance: VENETOCLAX
     Indication: Chronic lymphocytic leukaemia
     Route: 048
     Dates: start: 20220524
  2. VENETOCLAX [Suspect]
     Active Substance: VENETOCLAX
     Route: 048
     Dates: start: 20220526, end: 20220531
  3. VENETOCLAX [Suspect]
     Active Substance: VENETOCLAX
     Route: 048
     Dates: start: 20220601, end: 20220607
  4. VENETOCLAX [Suspect]
     Active Substance: VENETOCLAX
     Route: 048
     Dates: start: 20220608, end: 20220614
  5. VENETOCLAX [Suspect]
     Active Substance: VENETOCLAX
     Route: 048
     Dates: start: 20220615, end: 20220621
  6. VENETOCLAX [Suspect]
     Active Substance: VENETOCLAX
     Route: 048
     Dates: start: 20220622
  7. RITUXIMAB [Concomitant]
     Active Substance: RITUXIMAB
     Indication: Chronic lymphocytic leukaemia
     Route: 042
     Dates: start: 20220629
  8. RITUXIMAB [Concomitant]
     Active Substance: RITUXIMAB
  9. RASBURICASE [Concomitant]
     Active Substance: RASBURICASE
     Indication: Prophylaxis

REACTIONS (15)
  - Malignant neoplasm progression [Unknown]
  - Tumour lysis syndrome [Recovered/Resolved]
  - Blood phosphorus decreased [Recovered/Resolved]
  - Blood lactate dehydrogenase increased [Recovered/Resolved]
  - Skin lesion inflammation [Unknown]
  - Skin exfoliation [Unknown]
  - Pain of skin [Unknown]
  - Pruritus [Unknown]
  - Lymphadenopathy [Unknown]
  - Skin cancer [Unknown]
  - Skin ulcer [Unknown]
  - Abdominal mass [Unknown]
  - Blood potassium increased [Recovered/Resolved]
  - Neutropenia [Recovered/Resolved]
  - Blood creatinine increased [Recovered/Resolved]

NARRATIVE: CASE EVENT DATE: 20220101
